FAERS Safety Report 4384372-2 (Version None)
Quarter: 2004Q2

REPORT INFORMATION
  Report Type: 
  Country: None (occurrence: None)
  Receive Date: 20040624
  Receipt Date: 20040617
  Transmission Date: 20050107
  Serious: Yes (Hospitalization)
  Sender: FDA-Public Use
  Company Number: FR-BRISTOL-MYERS SQUIBB COMPANY-12618815

PATIENT
  Age: 68 Year
  Sex: Male
  Weight: 73 kg

DRUGS (6)
  1. COAPROVEL TABS [Suspect]
     Indication: HYPERTENSION
     Dosage: DOSAGE UNK
     Route: 048
  2. INIPOMP [Suspect]
     Indication: GASTRIC ULCER
     Route: 048
  3. KARDEGIC [Suspect]
     Route: 048
     Dates: end: 20030305
  4. FRAXODI [Suspect]
     Indication: PHLEBITIS
     Dosage: BEGAN 11AM
     Route: 058
     Dates: start: 20030305, end: 20030305
  5. DEXTROPROPOXIFEN [Concomitant]
  6. TADENAN [Concomitant]

REACTIONS (1)
  - HAEMATEMESIS [None]
